FAERS Safety Report 18164493 (Version 1)
Quarter: 2020Q3

REPORT INFORMATION
  Report Type: Spontaneous
  Country: US (occurrence: US)
  Receive Date: 20200818
  Receipt Date: 20200818
  Transmission Date: 20201103
  Serious: No
  Sender: FDA-Public Use
  Company Number: US-009507513-2008USA009456

PATIENT
  Age: 28 Year
  Sex: Female
  Weight: 55.78 kg

DRUGS (1)
  1. NEXPLANON [Suspect]
     Active Substance: ETONOGESTREL
     Indication: CONTRACEPTION
     Dosage: 1 DOSAGE FORM, LEFT, 3 YEAR
     Route: 059
     Dates: start: 20190524

REACTIONS (5)
  - Mood swings [Not Recovered/Not Resolved]
  - Menorrhagia [Not Recovered/Not Resolved]
  - Crying [Not Recovered/Not Resolved]
  - Anger [Not Recovered/Not Resolved]
  - Emotional disorder [Not Recovered/Not Resolved]
